FAERS Safety Report 5150496-5 (Version None)
Quarter: 2006Q4

REPORT INFORMATION
  Report Type: 
  Country: None (occurrence: None)
  Receive Date: 20061114
  Receipt Date: 20050608
  Transmission Date: 20070319
  Serious: Yes (Death)
  Sender: FDA-Public Use
  Company Number: JP-GLAXOSMITHKLINE-B0384265A

PATIENT
  Age: 23 Year
  Sex: Male
  Weight: 75 kg

DRUGS (5)
  1. PAXIL [Suspect]
     Indication: SUICIDE ATTEMPT
     Route: 048
     Dates: start: 20050608, end: 20050608
  2. GOKUMISIN [Concomitant]
     Route: 048
  3. URSO [Concomitant]
     Route: 048
  4. LORAZEPAM [Concomitant]
     Route: 048
  5. CARBAMAZEPINE [Concomitant]
     Route: 048

REACTIONS (3)
  - COMPLETED SUICIDE [None]
  - DRUG TOXICITY [None]
  - INTENTIONAL OVERDOSE [None]
